FAERS Safety Report 19064410 (Version 1)
Quarter: 2021Q1

REPORT INFORMATION
  Report Type: Spontaneous
  Country: CN (occurrence: CN)
  Receive Date: 20210326
  Receipt Date: 20210326
  Transmission Date: 20210420
  Serious: Yes (Other)
  Sender: FDA-Public Use
  Company Number: CN-GLAXOSMITHKLINE-CNCH2021015987

PATIENT
  Age: 62 Year
  Sex: Female

DRUGS (2)
  1. DIOSMIN (DIOSMIN) [Suspect]
     Active Substance: DIOSMIN
     Indication: OEDEMA PERIPHERAL
     Dosage: 2 DF, BID
     Route: 048
     Dates: start: 20210215, end: 20210226
  2. DICLOFENAC SODIUM. [Suspect]
     Active Substance: DICLOFENAC SODIUM
     Indication: OEDEMA PERIPHERAL
     Dosage: 1 DF, QD
     Route: 048
     Dates: start: 20210215, end: 20210226

REACTIONS (1)
  - Diarrhoea [Unknown]

NARRATIVE: CASE EVENT DATE: 20210226
